FAERS Safety Report 17279719 (Version 29)
Quarter: 2022Q4

REPORT INFORMATION
  Report Type: Spontaneous
  Country: CA (occurrence: CA)
  Receive Date: 20200116
  Receipt Date: 20221118
  Transmission Date: 20230112
  Serious: Yes (Hospitalization, Other)
  Sender: FDA-Public Use
  Company Number: CA-CELLTRION INC.-2019CA026794

PATIENT

DRUGS (38)
  1. INFLECTRA [Suspect]
     Active Substance: INFLIXIMAB-DYYB
     Indication: Crohn^s disease
     Dosage: 400 MG (5MG/KG) 400 MG, AT 0, 2, 6, THEN EVERY 8 WEEKS
     Route: 042
     Dates: start: 20190924
  2. INFLECTRA [Suspect]
     Active Substance: INFLIXIMAB-DYYB
     Dosage: (5MG/KG) 400 MG, AT 0, 2, 6, THEN EVERY 8 WEEKS
     Route: 042
     Dates: start: 20191008
  3. INFLECTRA [Suspect]
     Active Substance: INFLIXIMAB-DYYB
     Dosage: (5MG/KG) 400 MG, AT 0, 2, 6, THEN EVERY 8 WEEKS
     Route: 042
     Dates: start: 20191107
  4. INFLECTRA [Suspect]
     Active Substance: INFLIXIMAB-DYYB
     Dosage: (5MG/KG) 400 MG, AT 0, 2, 6, THEN EVERY 8 WEEKS
     Route: 042
     Dates: start: 20200107
  5. INFLECTRA [Suspect]
     Active Substance: INFLIXIMAB-DYYB
     Dosage: 600 MG  (EVERY 8 WEEKS)
     Route: 042
     Dates: start: 20200228
  6. INFLECTRA [Suspect]
     Active Substance: INFLIXIMAB-DYYB
     Dosage: 600 MG  (EVERY 8 WEEKS)
     Route: 042
     Dates: start: 20200228, end: 20200814
  7. INFLECTRA [Suspect]
     Active Substance: INFLIXIMAB-DYYB
     Dosage: 600 MG  (EVERY 8 WEEKS)
     Route: 042
     Dates: start: 20200424
  8. INFLECTRA [Suspect]
     Active Substance: INFLIXIMAB-DYYB
     Dosage: 600 MG  (EVERY 8 WEEKS)
     Route: 042
     Dates: start: 20200424
  9. INFLECTRA [Suspect]
     Active Substance: INFLIXIMAB-DYYB
     Dosage: 600 MG  (EVERY 8 WEEKS)
     Route: 042
     Dates: start: 20200619
  10. INFLECTRA [Suspect]
     Active Substance: INFLIXIMAB-DYYB
     Dosage: 600 MG  (EVERY 8 WEEKS)
     Route: 042
     Dates: start: 20200814
  11. INFLECTRA [Suspect]
     Active Substance: INFLIXIMAB-DYYB
     Dosage: 800 MG  (EVERY 8 WEEKS)
     Route: 042
     Dates: start: 20201009
  12. INFLECTRA [Suspect]
     Active Substance: INFLIXIMAB-DYYB
     Dosage: 800 MG  (EVERY 8 WEEKS)
     Route: 042
     Dates: start: 20201009, end: 20201009
  13. INFLECTRA [Suspect]
     Active Substance: INFLIXIMAB-DYYB
     Dosage: 800 MG  (EVERY 8 WEEKS)
     Route: 042
     Dates: start: 20201120
  14. INFLECTRA [Suspect]
     Active Substance: INFLIXIMAB-DYYB
     Dosage: 800 MG, EVERY 6 WEEKS
     Route: 042
     Dates: start: 20201120, end: 20210616
  15. INFLECTRA [Suspect]
     Active Substance: INFLIXIMAB-DYYB
     Dosage: 800 MG (EVERY 8 WEEKS)
     Route: 042
     Dates: start: 20210616
  16. INFLECTRA [Suspect]
     Active Substance: INFLIXIMAB-DYYB
     Dosage: 1000 MG, (10MG/KG) EVERY 4 WEEKS
     Route: 042
     Dates: start: 20210714
  17. INFLECTRA [Suspect]
     Active Substance: INFLIXIMAB-DYYB
     Dosage: 1000 MG, (10MG/KG) EVERY 4 WEEKS
     Route: 042
     Dates: start: 20210915
  18. INFLECTRA [Suspect]
     Active Substance: INFLIXIMAB-DYYB
     Dosage: 1000 MG, (10MG/KG) EVERY 4 WEEKS
     Route: 042
     Dates: start: 20211015
  19. INFLECTRA [Suspect]
     Active Substance: INFLIXIMAB-DYYB
     Dosage: 1000 MG, (10MG/KG) EVERY 4 WEEKS
     Route: 042
     Dates: start: 20211110
  20. INFLECTRA [Suspect]
     Active Substance: INFLIXIMAB-DYYB
     Dosage: 1000 MG, (10MG/KG) EVERY 4 WEEKS
     Route: 042
     Dates: start: 20211207
  21. INFLECTRA [Suspect]
     Active Substance: INFLIXIMAB-DYYB
     Dosage: 1000 MG, (10MG/KG) EVERY 4 WEEKS
     Route: 042
     Dates: start: 20220104
  22. INFLECTRA [Suspect]
     Active Substance: INFLIXIMAB-DYYB
     Dosage: 1000 MG, (10MG/KG) EVERY 4 WEEKS
     Route: 042
     Dates: start: 20220202
  23. INFLECTRA [Suspect]
     Active Substance: INFLIXIMAB-DYYB
     Dosage: 1000 MG, (10MG/KG) EVERY 4 WEEKS
     Route: 042
     Dates: start: 20220202
  24. INFLECTRA [Suspect]
     Active Substance: INFLIXIMAB-DYYB
     Dosage: 1000 MG, (10MG/KG) EVERY 4 WEEKS
     Route: 042
     Dates: start: 20220302
  25. INFLECTRA [Suspect]
     Active Substance: INFLIXIMAB-DYYB
     Dosage: 1000 MG, (10MG/KG) EVERY 4 WEEKS
     Route: 042
     Dates: start: 20220330
  26. INFLECTRA [Suspect]
     Active Substance: INFLIXIMAB-DYYB
     Dosage: 1000 MG, (10MG/KG) EVERY 4 WEEKS
     Route: 042
     Dates: start: 20220426
  27. INFLECTRA [Suspect]
     Active Substance: INFLIXIMAB-DYYB
     Dosage: 1000 MG, (10MG/KG) EVERY 4 WEEKS
     Route: 042
     Dates: start: 20220524
  28. INFLECTRA [Suspect]
     Active Substance: INFLIXIMAB-DYYB
     Dosage: 1000 MG, (10MG/KG) EVERY 4 WEEKS
     Route: 042
     Dates: start: 20220621
  29. INFLECTRA [Suspect]
     Active Substance: INFLIXIMAB-DYYB
     Dosage: 1000 MG, (10MG/KG) EVERY 4 WEEKS
     Route: 042
     Dates: start: 20220816
  30. INFLECTRA [Suspect]
     Active Substance: INFLIXIMAB-DYYB
     Dosage: 1000 MG, (10MG/KG) EVERY 4 WEEKS
     Route: 042
     Dates: start: 20220913
  31. INFLECTRA [Suspect]
     Active Substance: INFLIXIMAB-DYYB
     Dosage: 1000 MG,(10MG/KG), EVERY 4 WEEKS
     Route: 042
     Dates: start: 20221011
  32. INFLECTRA [Suspect]
     Active Substance: INFLIXIMAB-DYYB
     Dosage: 1000 MG,(10MG/KG), EVERY 4 WEEKS
     Route: 042
     Dates: start: 20221108
  33. FLOMAX [Concomitant]
     Active Substance: TAMSULOSIN HYDROCHLORIDE
     Dosage: UNK
  34. HYDROCORTISONE [Concomitant]
     Active Substance: HYDROCORTISONE
     Indication: Premedication
     Dosage: 100 MG
     Route: 042
     Dates: start: 20200619
  35. HYDROCORTISONE [Concomitant]
     Active Substance: HYDROCORTISONE
     Dosage: 100 MG
     Route: 042
     Dates: start: 20220104, end: 20220104
  36. HYDROCORTISONE [Concomitant]
     Active Substance: HYDROCORTISONE
     Dosage: 100 MG
     Route: 042
     Dates: start: 20220302, end: 20220302
  37. CANNABIS SATIVA SUBSP. INDICA TOP [Concomitant]
     Active Substance: CANNABIS SATIVA SUBSP. INDICA TOP
     Dosage: UNK
     Route: 055
  38. SOLU-CORTEF [Concomitant]
     Active Substance: HYDROCORTISONE SODIUM SUCCINATE
     Indication: Premedication
     Dosage: 100 MG
     Route: 042
     Dates: start: 20220330, end: 20220330

REACTIONS (19)
  - Nephrolithiasis [Unknown]
  - Therapeutic product effect incomplete [Unknown]
  - Therapeutic response shortened [Unknown]
  - Off label use [Unknown]
  - Off label use [Unknown]
  - Intentional product use issue [Unknown]
  - Anal fistula [Not Recovered/Not Resolved]
  - Bone density decreased [Unknown]
  - Weight increased [Unknown]
  - Cough [Recovering/Resolving]
  - Poor venous access [Unknown]
  - Anal fissure [Not Recovered/Not Resolved]
  - Body temperature decreased [Unknown]
  - Condition aggravated [Recovered/Resolved]
  - Hypertension [Unknown]
  - Gastrooesophageal reflux disease [Unknown]
  - Abdominal discomfort [Unknown]
  - Heart rate decreased [Unknown]
  - Arthralgia [Unknown]

NARRATIVE: CASE EVENT DATE: 20200107
